FAERS Safety Report 18213289 (Version 2)
Quarter: 2020Q3

REPORT INFORMATION
  Report Type: Spontaneous
  Country: US (occurrence: US)
  Receive Date: 20200831
  Receipt Date: 20200911
  Transmission Date: 20201103
  Serious: Yes (Other)
  Sender: FDA-Public Use
  Company Number: US-GLAXOSMITHKLINE-US2020171284

PATIENT
  Age: 69 Year
  Sex: Male
  Weight: 88.44 kg

DRUGS (1)
  1. NUCALA [Suspect]
     Active Substance: MEPOLIZUMAB
     Indication: ASTHMA
     Dosage: UNK, CYC (MONTHLY DOSES)
     Dates: start: 201808

REACTIONS (1)
  - Malignant melanoma [Recovering/Resolving]

NARRATIVE: CASE EVENT DATE: 20200127
